FAERS Safety Report 15008839 (Version 1)
Quarter: 2018Q2

REPORT INFORMATION
  Report Type: Spontaneous
  Country: None (occurrence: DE)
  Receive Date: 20180613
  Receipt Date: 20180613
  Transmission Date: 20180711
  Serious: Yes (Other)
  Sender: FDA-Public Use
  Company Number: DE-LABORATOIRE HRA PHARMA-2049366

PATIENT
  Age: 52 Year
  Sex: Female

DRUGS (18)
  1. PROGESTERONE. [Concomitant]
     Active Substance: PROGESTERONE
  2. COLECALCIFEROL [Concomitant]
     Active Substance: CHOLECALCIFEROL
     Dates: start: 20150826
  3. FERROUS GLYCINE SULFATE [Concomitant]
     Active Substance: FERROUS GLYCINE SULFATE
     Dates: start: 20160501
  4. CLONIDINE. [Concomitant]
     Active Substance: CLONIDINE
     Dates: start: 20160322
  5. LEVOTHYROXINE SODIUM. [Concomitant]
     Active Substance: LEVOTHYROXINE SODIUM
     Dates: start: 20150309
  6. ALLOPURINOL SODIUM. [Concomitant]
     Active Substance: ALLOPURINOL SODIUM
  7. SALBUTAMOL [Concomitant]
     Active Substance: ALBUTEROL
  8. BISOPROLOL [Concomitant]
     Active Substance: BISOPROLOL
  9. RAMIPRIL. [Concomitant]
     Active Substance: RAMIPRIL
  10. METOPIRONE [Suspect]
     Active Substance: METYRAPONE
     Indication: PRODUCT USED FOR UNKNOWN INDICATION
  11. CALCIUM [Concomitant]
     Active Substance: CALCIUM
     Dates: start: 20150826, end: 20160315
  12. POTASSIUM IODIDE. [Concomitant]
     Active Substance: POTASSIUM IODIDE
  13. LEVOTHYROXINE SODIUM. [Concomitant]
     Active Substance: LEVOTHYROXINE SODIUM
  14. HYDROCORTISONE SODIUM SUCCINATE [Concomitant]
     Active Substance: HYDROCORTISONE SODIUM SUCCINATE
     Dates: start: 20150309, end: 20160405
  15. PASIREOTIDE. [Suspect]
     Active Substance: PASIREOTIDE
     Route: 058
     Dates: start: 20160322
  16. CETIRIZINE [Concomitant]
     Active Substance: CETIRIZINE HYDROCHLORIDE
  17. LERCANIDIPINE [Concomitant]
     Active Substance: LERCANIDIPINE
  18. CLONIDINE. [Concomitant]
     Active Substance: CLONIDINE
     Dates: end: 20180321

REACTIONS (3)
  - Hypokalaemia [Recovered/Resolved]
  - Hypertrichosis [Unknown]
  - Adrenal insufficiency [Recovered/Resolved]

NARRATIVE: CASE EVENT DATE: 20170810
